FAERS Safety Report 8860592 (Version 4)
Quarter: 2015Q4

REPORT INFORMATION
  Report Type: Spontaneous
  Country: US (occurrence: US)
  Receive Date: 20121025
  Receipt Date: 20151029
  Transmission Date: 20160305
  Serious: Yes (Hospitalization, Disabling, Other)
  Sender: FDA-Public Use
  Company Number: US-MERCK-1210USA005984

PATIENT
  Sex: Female
  Weight: 54.42 kg

DRUGS (3)
  1. VITAMINS (UNSPECIFIED) [Concomitant]
     Active Substance: VITAMINS
     Dosage: 1500 DAILY
     Dates: start: 2003
  2. FOSAMAX [Suspect]
     Active Substance: ALENDRONATE SODIUM
     Indication: OSTEOPOROSIS
     Dosage: 70 MG, QW
     Route: 048
     Dates: start: 20020314, end: 20100901
  3. VENLAFAXINE HYDROCHLORIDE. [Concomitant]
     Active Substance: VENLAFAXINE HYDROCHLORIDE
     Indication: MENOPAUSE
     Dosage: UNK
     Dates: start: 1998

REACTIONS (26)
  - Soft tissue injury [Unknown]
  - Femur fracture [Not Recovered/Not Resolved]
  - Sleep disorder [Unknown]
  - Amblyopia [Unknown]
  - Low turnover osteopathy [Not Recovered/Not Resolved]
  - Fall [Unknown]
  - Intramedullary rod insertion [Unknown]
  - Multiple sclerosis [Unknown]
  - Hysterectomy [Unknown]
  - Abdominal discomfort [Unknown]
  - Adverse event [Unknown]
  - Foot fracture [Unknown]
  - Osteoarthritis [Unknown]
  - Hyperlipidaemia [Unknown]
  - Muscle spasms [Unknown]
  - Femoral neck fracture [Not Recovered/Not Resolved]
  - Depression [Unknown]
  - Palpitations [Unknown]
  - Decreased appetite [Unknown]
  - Back pain [Unknown]
  - Trigeminal neuralgia [Unknown]
  - Bladder disorder [Unknown]
  - Road traffic accident [Unknown]
  - Muscle spasms [Unknown]
  - Fall [Unknown]
  - Anxiety [Unknown]

NARRATIVE: CASE EVENT DATE: 2002
